FAERS Safety Report 7670760-5 (Version None)
Quarter: 2011Q3

REPORT INFORMATION
  Report Type: 
  Country: None (occurrence: None)
  Receive Date: 20110711
  Receipt Date: 20110415
  Transmission Date: 20111222
  Serious: Yes (Other)
  Sender: FDA-Public Use
  Company Number: IPC201104-000679

PATIENT

DRUGS (4)
  1. METOCLOPRAMIDE [Suspect]
     Dates: start: 20070701, end: 20090801
  2. METOCLOPRAMIDE HYDROCHLORIDE [Suspect]
     Dates: start: 20070701, end: 20090801
  3. REGLAN [Suspect]
     Dates: start: 20070701, end: 20090801
  4. METOCLOPRAMIDE [Suspect]
     Dates: start: 20070701, end: 20090801

REACTIONS (2)
  - TARDIVE DYSKINESIA [None]
  - EXTRAPYRAMIDAL DISORDER [None]
